FAERS Safety Report 10100361 (Version 1)
Quarter: 2014Q2

REPORT INFORMATION
  Report Type: Spontaneous
  Country: US (occurrence: US)
  Receive Date: 20140423
  Receipt Date: 20140423
  Transmission Date: 20141212
  Serious: No
  Sender: FDA-Public Use
  Company Number: US-ASTRAZENECA-2014SE23048

PATIENT
  Age: 72 Year
  Sex: Male
  Weight: 75.8 kg

DRUGS (6)
  1. ATACAND [Suspect]
     Indication: BLOOD PRESSURE ABNORMAL
     Route: 048
     Dates: end: 201307
  2. ATACAND [Suspect]
     Indication: BLOOD PRESSURE ABNORMAL
     Dosage: GENERIC
     Route: 048
     Dates: start: 201307, end: 20130928
  3. SIMVASTATIN [Concomitant]
     Indication: BLOOD CHOLESTEROL INCREASED
  4. ASPIRIN [Concomitant]
  5. TYELENOL [Concomitant]
  6. CLARITIN OTC [Concomitant]

REACTIONS (2)
  - Tremor [Recovered/Resolved]
  - Lip swelling [Recovered/Resolved]
